FAERS Safety Report 5012604-6 (Version None)
Quarter: 2006Q2

REPORT INFORMATION
  Report Type: 
  Country: None (occurrence: None)
  Receive Date: 20060410
  Receipt Date: 20060113
  Transmission Date: 20061013
  Serious: No
  Sender: FDA-Public Use
  Company Number: ENTC2005-0350

PATIENT
  Sex: Female

DRUGS (1)
  1. STALEVO 150 [Suspect]
     Dosage: 5 A DAY, ORAL
     Route: 048

REACTIONS (1)
  - DRUG INEFFECTIVE [None]
